FAERS Safety Report 13869041 (Version 2)
Quarter: 2017Q3

REPORT INFORMATION
  Report Type: Spontaneous
  Country: US (occurrence: US)
  Receive Date: 20170815
  Receipt Date: 20170915
  Transmission Date: 20171127
  Serious: No
  Sender: FDA-Public Use
  Company Number: PHEH2017US024385

PATIENT
  Age: 82 Year
  Sex: Female
  Weight: 65.31 kg

DRUGS (1)
  1. CLOBETASOL PROPIONATE. [Suspect]
     Active Substance: CLOBETASOL PROPIONATE
     Indication: EXPOSURE TO TOXIC AGENT
     Dosage: UNK, ONCE/SINGLE
     Route: 061
     Dates: start: 20170728, end: 20170728

REACTIONS (6)
  - Drug ineffective [Not Recovered/Not Resolved]
  - Sleep disorder [Unknown]
  - Application site pruritus [Not Recovered/Not Resolved]
  - Application site erythema [Not Recovered/Not Resolved]
  - Application site pain [Not Recovered/Not Resolved]
  - Application site vesicles [Not Recovered/Not Resolved]

NARRATIVE: CASE EVENT DATE: 20170728
